FAERS Safety Report 24280315 (Version 1)
Quarter: 2024Q3

REPORT INFORMATION
  Report Type: Spontaneous
  Country: US (occurrence: US)
  Receive Date: 20240904
  Receipt Date: 20240904
  Transmission Date: 20241017
  Serious: Yes (Other)
  Sender: ELI LILLY AND CO
  Company Number: US-ELI_LILLY_AND_COMPANY-US202408015991

PATIENT
  Age: 61 Year

DRUGS (1)
  1. TRULICITY [Suspect]
     Active Substance: DULAGLUTIDE
     Indication: Type 2 diabetes mellitus
     Dosage: UNK UNK, UNKNOWN
     Route: 065
     Dates: start: 202101, end: 202306

REACTIONS (5)
  - Vomiting [Unknown]
  - Impaired gastric emptying [Unknown]
  - Constipation [Unknown]
  - Nausea [Unknown]
  - Abdominal pain [Unknown]
